FAERS Safety Report 15528936 (Version 1)
Quarter: 2018Q4

REPORT INFORMATION
  Report Type: Spontaneous
  Country: GB (occurrence: GB)
  Receive Date: 20181018
  Receipt Date: 20181018
  Transmission Date: 20190205
  Serious: Yes (Hospitalization)
  Sender: FDA-Public Use
  Company Number: GB-DEXPHARM-20180793

PATIENT
  Age: 98 Year
  Sex: Female

DRUGS (14)
  1. OMEPRAZOLE. [Interacting]
     Active Substance: OMEPRAZOLE
     Route: 048
     Dates: end: 20180920
  2. ASPIRIN. [Suspect]
     Active Substance: ASPIRIN
     Route: 048
     Dates: end: 20180920
  3. CITALOPRAM [Interacting]
     Active Substance: CITALOPRAM HYDROBROMIDE
     Route: 048
     Dates: end: 20180920
  4. ADCAL-D3 [Concomitant]
     Active Substance: CALCIUM CARBONATE\CHOLECALCIFEROL
  5. PARACETAMOL [Concomitant]
     Active Substance: ACETAMINOPHEN
  6. BISOPROLOL [Concomitant]
     Active Substance: BISOPROLOL
  7. ANASTROZOLE. [Concomitant]
     Active Substance: ANASTROZOLE
  8. NITRAZEPAM [Suspect]
     Active Substance: NITRAZEPAM
     Route: 048
     Dates: end: 20180920
  9. FERROUS FUMARATE [Concomitant]
     Active Substance: FERROUS FUMARATE
     Route: 048
     Dates: end: 20180926
  10. ADALAT [Concomitant]
     Active Substance: NIFEDIPINE
  11. RAMIPRIL. [Interacting]
     Active Substance: RAMIPRIL
     Route: 048
     Dates: end: 20180920
  12. METFORMIN [Concomitant]
     Active Substance: METFORMIN HYDROCHLORIDE
  13. CARBOMERS [Concomitant]
  14. CLOTRIMAZOLE. [Concomitant]
     Active Substance: CLOTRIMAZOLE
     Dates: start: 20180914

REACTIONS (1)
  - Drug interaction [Unknown]
